FAERS Safety Report 7245079-7 (Version None)
Quarter: 2011Q1

REPORT INFORMATION
  Report Type: 
  Country: None (occurrence: None)
  Receive Date: 20110118
  Receipt Date: 20110104
  Transmission Date: 20110831
  Serious: Yes (Hospitalization)
  Sender: FDA-Public Use
  Company Number: 024891

PATIENT
  Sex: Female
  Weight: 59 kg

DRUGS (1)
  1. CIMZIA [Suspect]
     Indication: OFF LABEL USE
     Dosage: (400 MG 1X/2 WEEKS SUBCUTANEOUS)
     Route: 058
     Dates: start: 20090101, end: 20110103

REACTIONS (6)
  - ABDOMINAL PAIN [None]
  - MALAISE [None]
  - DRUG PRESCRIBING ERROR [None]
  - OFF LABEL USE [None]
  - SKIN INFECTION [None]
  - BLOOD POTASSIUM DECREASED [None]
